FAERS Safety Report 14030374 (Version 3)
Quarter: 2017Q4

REPORT INFORMATION
  Report Type: Spontaneous
  Country: NZ (occurrence: NZ)
  Receive Date: 20171002
  Receipt Date: 20171213
  Transmission Date: 20180321
  Serious: Yes (Other)
  Sender: FDA-Public Use
  Company Number: NZ-ELI_LILLY_AND_COMPANY-NZ201709008996

PATIENT
  Age: 41 Year
  Sex: Male

DRUGS (2)
  1. VENLAFAXINE [Concomitant]
     Active Substance: VENLAFAXINE HYDROCHLORIDE
     Indication: PRODUCT USED FOR UNKNOWN INDICATION
     Dosage: 150 MG, DAILY
     Route: 065
  2. ZYPREXA RELPREVV [Suspect]
     Active Substance: OLANZAPINE PAMOATE
     Indication: SCHIZOPHRENIA
     Dosage: 405 MG, 2/M
     Route: 030

REACTIONS (16)
  - Irritability [Recovered/Resolved]
  - Pain in extremity [Recovered/Resolved]
  - Somnolence [Recovered/Resolved]
  - Gait disturbance [Recovered/Resolved]
  - Feeling drunk [Recovered/Resolved]
  - Akathisia [Recovered/Resolved]
  - Dysarthria [Recovered/Resolved]
  - Post-injection delirium sedation syndrome [Recovered/Resolved]
  - Agitation [Recovered/Resolved]
  - Ataxia [Recovered/Resolved]
  - Feeling abnormal [Recovered/Resolved]
  - Delirium [Recovered/Resolved]
  - Sedation [Recovered/Resolved]
  - Overdose [Unknown]
  - Restlessness [Recovered/Resolved]
  - Disorientation [Recovered/Resolved]

NARRATIVE: CASE EVENT DATE: 20170920
